FAERS Safety Report 5098951-0 (Version None)
Quarter: 2006Q3

REPORT INFORMATION
  Report Type: 
  Country: None (occurrence: None)
  Receive Date: 20060907
  Receipt Date: 20060830
  Transmission Date: 20061208
  Serious: Yes (Hospitalization)
  Sender: FDA-Public Use
  Company Number: PHHO2006CH14339

PATIENT
  Sex: Male
  Weight: 96 kg

DRUGS (3)
  1. CERTICAN [Suspect]
     Indication: RENAL TRANSPLANT
     Dosage: 2 MG PER DAY
     Route: 048
     Dates: start: 20060607
  2. MYFORTIC [Suspect]
     Indication: RENAL TRANSPLANT
     Route: 048
     Dates: start: 20060607
  3. STEROIDS NOS [Suspect]

REACTIONS (2)
  - DYSPNOEA [None]
  - PULMONARY EMBOLISM [None]
